FAERS Safety Report 13173005 (Version 2)
Quarter: 2017Q2

REPORT INFORMATION
  Report Type: Report from Study
  Country: US (occurrence: US)
  Receive Date: 20170201
  Receipt Date: 20170406
  Transmission Date: 20170830
  Serious: Yes (Hospitalization)
  Sender: FDA-Public Use
  Company Number: US-BIOGEN-2017BI00350840

PATIENT
  Age: 69 Year
  Sex: Female

DRUGS (1)
  1. TECFIDERA [Suspect]
     Active Substance: DIMETHYL FUMARATE
     Indication: MULTIPLE SCLEROSIS
     Dosage: MAINTENANCE DOSE
     Route: 048
     Dates: start: 20131024

REACTIONS (6)
  - Diverticulitis [Unknown]
  - Gastritis [Unknown]
  - Heart rate increased [Unknown]
  - Impaired gastric emptying [Unknown]
  - Retching [Unknown]
  - Swelling face [Unknown]

NARRATIVE: CASE EVENT DATE: 201606
